FAERS Safety Report 13029164 (Version 1)
Quarter: 2016Q4

REPORT INFORMATION
  Report Type: Spontaneous
  Country: US (occurrence: US)
  Receive Date: 20161214
  Receipt Date: 20161214
  Transmission Date: 20170207
  Serious: No
  Sender: FDA-Public Use
  Company Number: None

PATIENT
  Age: 56 Year
  Sex: Male

DRUGS (1)
  1. HARVONI [Suspect]
     Active Substance: LEDIPASVIR\SOFOSBUVIR
     Dosage: 90/400 DAILY ORAL
     Route: 048

REACTIONS (3)
  - Flatulence [None]
  - Weight increased [None]
  - Ex-tobacco user [None]

NARRATIVE: CASE EVENT DATE: 20161212
